FAERS Safety Report 12415150 (Version 1)
Quarter: 2016Q2

REPORT INFORMATION
  Report Type: Spontaneous
  Country: FR (occurrence: FR)
  Receive Date: 20160530
  Receipt Date: 20160530
  Transmission Date: 20160815
  Serious: Yes (Hospitalization)
  Sender: FDA-Public Use
  Company Number: FR-ROCHE-1765101

PATIENT
  Age: 54 Year
  Sex: Male
  Weight: 73 kg

DRUGS (4)
  1. BECILAN [Suspect]
     Active Substance: PYRIDOXINE
     Indication: PRODUCT USED FOR UNKNOWN INDICATION
     Route: 065
     Dates: start: 20160504, end: 20160507
  2. VALIUM [Suspect]
     Active Substance: DIAZEPAM
     Indication: ALCOHOL ABUSE
     Route: 048
     Dates: start: 20160504, end: 20160507
  3. DOLIPRANE [Suspect]
     Active Substance: ACETAMINOPHEN
     Indication: PRODUCT USED FOR UNKNOWN INDICATION
     Dosage: IF NEEDED
     Route: 048
     Dates: start: 20160504, end: 20160507
  4. BEVITINE [Suspect]
     Active Substance: THIAMINE
     Indication: PRODUCT USED FOR UNKNOWN INDICATION
     Route: 065
     Dates: start: 20160504, end: 20160507

REACTIONS (1)
  - Toxic skin eruption [Not Recovered/Not Resolved]

NARRATIVE: CASE EVENT DATE: 20160507
